FAERS Safety Report 13031314 (Version 6)
Quarter: 2017Q1

REPORT INFORMATION
  Report Type: Spontaneous
  Country: CA (occurrence: CA)
  Receive Date: 20161215
  Receipt Date: 20170316
  Transmission Date: 20170428
  Serious: Yes (Other)
  Sender: FDA-Public Use
  Company Number: CA-GLAXOSMITHKLINE-CA2016GSK185006

PATIENT
  Age: 56 Year
  Sex: Female

DRUGS (5)
  1. NUCALA [Suspect]
     Active Substance: MEPOLIZUMAB
     Dosage: 100 MG, Z
     Route: 042
     Dates: start: 20170307
  2. VENTOLIN [Suspect]
     Active Substance: ALBUTEROL SULFATE
     Indication: PRODUCT USED FOR UNKNOWN INDICATION
     Dosage: UNK
  3. NUCALA [Suspect]
     Active Substance: MEPOLIZUMAB
     Indication: ASTHMA
     Dosage: 100 MG, Z
     Route: 042
  4. NUCALA [Suspect]
     Active Substance: MEPOLIZUMAB
     Dosage: 100 MG, Z
     Route: 042
     Dates: start: 20170110
  5. NUCALA [Suspect]
     Active Substance: MEPOLIZUMAB
     Dosage: 100 MG, Z
     Route: 042
     Dates: start: 20170208

REACTIONS (22)
  - Dyspnoea [Unknown]
  - Breath sounds abnormal [Unknown]
  - Peak expiratory flow rate decreased [Unknown]
  - Abdominal pain [Recovered/Resolved]
  - Ear pain [Unknown]
  - Increased viscosity of bronchial secretion [Unknown]
  - Diarrhoea [Unknown]
  - Wheezing [Unknown]
  - Feeling abnormal [Unknown]
  - Depression [Unknown]
  - Oropharyngeal pain [Unknown]
  - Poor quality sleep [Unknown]
  - Pyrexia [Unknown]
  - Sputum discoloured [Not Recovered/Not Resolved]
  - Abdominal discomfort [Recovered/Resolved]
  - Type 2 diabetes mellitus [Unknown]
  - Cough [Not Recovered/Not Resolved]
  - Osteoporosis [Unknown]
  - Asthma [Unknown]
  - Productive cough [Unknown]
  - Fatigue [Not Recovered/Not Resolved]
  - Fibromyalgia [Unknown]

NARRATIVE: CASE EVENT DATE: 20161230
